FAERS Safety Report 13002424 (Version 4)
Quarter: 2017Q1

REPORT INFORMATION
  Report Type: Report from Study
  Country: CO (occurrence: CO)
  Receive Date: 20161206
  Receipt Date: 20170123
  Transmission Date: 20170428
  Serious: Yes (Hospitalization)
  Sender: FDA-Public Use
  Company Number: PHHY2016CO165514

PATIENT
  Age: 29 Year
  Sex: Female
  Weight: 72 kg

DRUGS (3)
  1. ALOPURINOL [Concomitant]
     Active Substance: ALLOPURINOL
     Indication: PRODUCT USED FOR UNKNOWN INDICATION
     Route: 065
  2. TASIGNA [Suspect]
     Active Substance: NILOTINIB
     Indication: CHRONIC MYELOID LEUKAEMIA
     Dosage: 200 MG, BID (ONE IN THE MORNING AND ONE AT NIGHT)
     Route: 048
     Dates: start: 20130315
  3. TASIGNA [Suspect]
     Active Substance: NILOTINIB
     Dosage: 200 MG, BID (ONE IN THE MORNING AND ONE AT NIGHT)
     Route: 048
     Dates: start: 20161201, end: 20161231

REACTIONS (14)
  - Vomiting [Unknown]
  - Anxiety [Unknown]
  - Haemoglobin decreased [Unknown]
  - Abdominal pain [Unknown]
  - Dizziness [Unknown]
  - Fatigue [Unknown]
  - Incorrect drug administration duration [Unknown]
  - Splenitis [Unknown]
  - Splenomegaly [Unknown]
  - Hepatomegaly [Unknown]
  - Headache [Unknown]
  - White blood cell count increased [Unknown]
  - Hepatitis [Unknown]
  - Chronic myeloid leukaemia recurrent [Unknown]

NARRATIVE: CASE EVENT DATE: 20161126
